FAERS Safety Report 9648905 (Version 1)
Quarter: 2013Q4

REPORT INFORMATION
  Report Type: Spontaneous
  Country: US (occurrence: None)
  Receive Date: 20131025
  Receipt Date: 20131025
  Transmission Date: 20140711
  Serious: Yes (Other)
  Sender: FDA-Public Use
  Company Number: None

PATIENT
  Age: 88 Year
  Sex: Male
  Weight: 69.85 kg

DRUGS (1)
  1. TRIAMTERENE/HYDROCHLOROTHIAZIDE [Suspect]
     Indication: HYPERTENSION
     Route: 048
     Dates: start: 20121119, end: 20121230

REACTIONS (5)
  - Dysarthria [None]
  - Pallor [None]
  - Peripheral coldness [None]
  - Blood pressure decreased [None]
  - Unresponsive to stimuli [None]
